FAERS Safety Report 7541314-6 (Version None)
Quarter: 2011Q2

REPORT INFORMATION
  Report Type: 
  Country: None (occurrence: None)
  Receive Date: 20110611
  Receipt Date: 20110607
  Transmission Date: 20111010
  Serious: Yes (Hospitalization, Other)
  Sender: FDA-Public Use
  Company Number: US-ABBOTT-11P-163-0731073-00

PATIENT
  Sex: Female
  Weight: 64.468 kg

DRUGS (7)
  1. HUMIRA [Suspect]
     Indication: PRODUCT USED FOR UNKNOWN INDICATION
     Dosage: LOADING DOSE
     Dates: start: 20110421, end: 20110421
  2. SOTALOL HCL [Concomitant]
     Indication: HYPERTENSION
  3. FUROSEMIDE [Concomitant]
     Indication: FLUID RETENTION
  4. HUMIRA [Suspect]
     Dosage: LOADING DOSE
     Dates: start: 20110505, end: 20110505
  5. FLAGYL [Concomitant]
     Indication: PRODUCT USED FOR UNKNOWN INDICATION
     Dosage: FOR SEVEN DAYS
  6. METOPROLOL [Concomitant]
     Indication: HYPERTENSION
  7. AMLODIPINE [Concomitant]
     Indication: HYPERTENSION

REACTIONS (8)
  - MOVEMENT DISORDER [None]
  - PYREXIA [None]
  - PAIN [None]
  - CHOLECYSTECTOMY [None]
  - COLITIS ULCERATIVE [None]
  - THINKING ABNORMAL [None]
  - APHAGIA [None]
  - INSOMNIA [None]
